FAERS Safety Report 25968661 (Version 1)
Quarter: 2025Q4

REPORT INFORMATION
  Report Type: Spontaneous
  Country: US (occurrence: None)
  Receive Date: 20251027
  Receipt Date: 20251027
  Transmission Date: 20260119
  Serious: Yes (Hospitalization)
  Sender: FDA-CTU
  Company Number: None

PATIENT
  Age: 22 Year
  Sex: Male
  Weight: 109.77 kg

DRUGS (1)
  1. CORTICOTROPIN [Suspect]
     Active Substance: CORTICOTROPIN
     Indication: Nephrotic syndrome
     Dosage: FREQUENCY : TWICE A WEEK;?
     Route: 058

REACTIONS (6)
  - Diarrhoea [None]
  - Abdominal discomfort [None]
  - Hypersensitivity [None]
  - Condition aggravated [None]
  - Nephrotic syndrome [None]
  - Condition aggravated [None]

NARRATIVE: CASE EVENT DATE: 20250825
